FAERS Safety Report 5369524-7 (Version None)
Quarter: 2007Q2

REPORT INFORMATION
  Report Type: 
  Country: None (occurrence: None)
  Receive Date: 20070625
  Receipt Date: 20070621
  Transmission Date: 20071010
  Serious: Yes (Hospitalization)
  Sender: FDA-Public Use
  Company Number: B0472235A

PATIENT
  Age: 59 Year
  Sex: Female

DRUGS (10)
  1. AMOXICILLIN TRIHYDRATE [Suspect]
     Route: 048
     Dates: start: 20070501, end: 20070507
  2. OFLOCET [Suspect]
     Indication: URINARY TRACT INFECTION
     Route: 065
     Dates: start: 20070427, end: 20070507
  3. GENTALLINE [Suspect]
     Indication: MEDIASTINITIS
     Route: 042
     Dates: start: 20070428, end: 20070504
  4. VANCOMYCIN [Concomitant]
     Indication: MEDIASTINITIS
     Route: 065
  5. LOVENOX [Concomitant]
     Route: 065
  6. NEXIUM [Concomitant]
     Route: 065
  7. KARDEGIC 160 [Concomitant]
     Route: 065
  8. ATORVASTATIN CALCIUM [Concomitant]
     Route: 065
  9. SECTRAL [Concomitant]
     Route: 065
  10. PLAVIX [Concomitant]
     Route: 065

REACTIONS (4)
  - ANGIOPATHY [None]
  - HYPERSENSITIVITY [None]
  - RENAL FAILURE ACUTE [None]
  - RENAL TUBULAR NECROSIS [None]
